FAERS Safety Report 19433535 (Version 2)
Quarter: 2021Q2

REPORT INFORMATION
  Report Type: Spontaneous
  Country: US (occurrence: US)
  Receive Date: 20210617
  Receipt Date: 20210628
  Transmission Date: 20210717
  Serious: Yes (Hospitalization, Other)
  Sender: FDA-Public Use
  Company Number: US-JNJFOC-20210626223

PATIENT
  Age: 49 Year
  Sex: Male
  Weight: 104.42 kg

DRUGS (3)
  1. SPRAVATO [Suspect]
     Active Substance: ESKETAMINE
     Dosage: 84MG, 61 TOTAL DOSES
     Dates: start: 20200918
  2. SPRAVATO [Suspect]
     Active Substance: ESKETAMINE
     Indication: DEPRESSION
     Dosage: 56 MG, 2 TOTAL DOSES
     Dates: start: 20200825, end: 20200828
  3. SPRAVATO [Suspect]
     Active Substance: ESKETAMINE
     Indication: POST-TRAUMATIC STRESS DISORDER
     Dosage: 56 MG, 3 TOTAL DOSES
     Dates: start: 20200901, end: 20200915

REACTIONS (5)
  - Underdose [Unknown]
  - Drug ineffective [Unknown]
  - Drug intolerance [Unknown]
  - Seizure [Unknown]
  - Depression [Unknown]

NARRATIVE: CASE EVENT DATE: 2020
